FAERS Safety Report 7920186-1 (Version None)
Quarter: 2011Q4

REPORT INFORMATION
  Report Type: 
  Country: None (occurrence: None)
  Receive Date: 20111117
  Receipt Date: 20111109
  Transmission Date: 20120403
  Serious: Yes (Hospitalization, Other)
  Sender: FDA-Public Use
  Company Number: JP-JNJFOC-20111102507

PATIENT
  Age: 58 Year
  Sex: Female
  Weight: 46 kg

DRUGS (10)
  1. FUNGUARD [Concomitant]
     Route: 041
     Dates: start: 20080613
  2. FUNGUARD [Concomitant]
     Route: 041
     Dates: start: 20081027
  3. FLUCONAZOLE [Concomitant]
     Route: 048
     Dates: start: 20080805, end: 20081204
  4. VORICONAZOLE [Concomitant]
     Route: 042
     Dates: start: 20081205, end: 20090204
  5. ITRACONAZOLE [Suspect]
     Indication: SYSTEMIC CANDIDA
     Route: 048
     Dates: start: 20080617, end: 20080805
  6. AMPHOTERICIN B [Concomitant]
     Route: 041
     Dates: start: 20080729, end: 20081026
  7. VORICONAZOLE [Concomitant]
     Route: 048
     Dates: start: 20090212
  8. VORICONAZOLE [Concomitant]
     Route: 048
     Dates: start: 20090205, end: 20090211
  9. AMPHOTERICIN B [Concomitant]
     Route: 041
     Dates: start: 20080702, end: 20080728
  10. VORICONAZOLE [Concomitant]
     Route: 042
     Dates: start: 20080606

REACTIONS (3)
  - PYREXIA [None]
  - PANCREATIC DISORDER [None]
  - HEPATIC LESION [None]
